FAERS Safety Report 8406988-6 (Version None)
Quarter: 2012Q2

REPORT INFORMATION
  Report Type: 
  Country: None (occurrence: None)
  Receive Date: 20120604
  Receipt Date: 20120529
  Transmission Date: 20120825
  Serious: Yes (Other)
  Sender: FDA-Public Use
  Company Number: US-PFIZER INC-2011166811

PATIENT

DRUGS (2)
  1. LYRICA [Suspect]
     Dosage: 50 MG, 2 OR 3 TIMES A DAY
     Dates: start: 20120101, end: 20120101
  2. LYRICA [Suspect]
     Dosage: 75 MG, 2X/DAY
     Dates: start: 20120101, end: 20120101

REACTIONS (4)
  - HYPERSENSITIVITY [None]
  - OEDEMA PERIPHERAL [None]
  - GENERALISED OEDEMA [None]
  - EYE SWELLING [None]
